FAERS Safety Report 6011714-4 (Version None)
Quarter: 2008Q4

REPORT INFORMATION
  Report Type: 
  Country: None (occurrence: None)
  Receive Date: 20081218
  Receipt Date: 19900607
  Transmission Date: 20090506
  Serious: Yes (Death, Life-Threatening)
  Sender: FDA-Public Use
  Company Number: IT-ROCHE-900700065001

PATIENT
  Sex: Male
  Weight: 88 kg

DRUGS (1)
  1. INTERFERON ALFA-2A [Suspect]
     Dosage: DOSAGE REPORTED AS 9 MILLION UNITS
     Route: 058
     Dates: start: 19900315, end: 19900317

REACTIONS (1)
  - METASTASES TO CENTRAL NERVOUS SYSTEM [None]
